FAERS Safety Report 8074590-4 (Version None)
Quarter: 2012Q1

REPORT INFORMATION
  Report Type: 
  Country: None (occurrence: None)
  Receive Date: 20120126
  Receipt Date: 20120120
  Transmission Date: 20120608
  Serious: Yes (Other)
  Sender: FDA-Public Use
  Company Number: US-BAYER-2012-007325

PATIENT
  Age: 67 Year
  Sex: Female
  Weight: 63 kg

DRUGS (3)
  1. CITRACAL PETITES [Suspect]
     Dosage: 200
     Route: 048
  2. COPPER [Concomitant]
  3. BIOTIN [Concomitant]

REACTIONS (1)
  - CHOKING [None]
